FAERS Safety Report 4425604-1 (Version None)
Quarter: 2004Q3

REPORT INFORMATION
  Report Type: 
  Country: None (occurrence: None)
  Receive Date: 20040810
  Receipt Date: 20040730
  Transmission Date: 20050211
  Serious: Yes (Hospitalization, Disabling)
  Sender: FDA-Public Use
  Company Number: HQWYE715105MAY04

PATIENT
  Age: 49 Year
  Sex: Female
  Weight: 81.72 kg

DRUGS (44)
  1. EFFEXOR XR [Suspect]
     Indication: ANXIETY
     Dosage: SEE IMAGE
     Route: 048
     Dates: start: 20030301, end: 20030501
  2. EFFEXOR XR [Suspect]
     Indication: DEPRESSION
     Dosage: SEE IMAGE
     Route: 048
     Dates: start: 20030301, end: 20030501
  3. EFFEXOR XR [Suspect]
     Indication: ANXIETY
     Dosage: SEE IMAGE
     Route: 048
     Dates: start: 20030501, end: 20030917
  4. EFFEXOR XR [Suspect]
     Indication: DEPRESSION
     Dosage: SEE IMAGE
     Route: 048
     Dates: start: 20030501, end: 20030917
  5. EFFEXOR XR [Suspect]
     Indication: ANXIETY
     Dosage: SEE IMAGE
     Route: 048
     Dates: start: 20030918, end: 20031027
  6. EFFEXOR XR [Suspect]
     Indication: DEPRESSION
     Dosage: SEE IMAGE
     Route: 048
     Dates: start: 20030918, end: 20031027
  7. EFFEXOR XR [Suspect]
     Indication: ANXIETY
     Dosage: SEE IMAGE
     Route: 048
     Dates: start: 20031028, end: 20040216
  8. EFFEXOR XR [Suspect]
     Indication: DEPRESSION
     Dosage: SEE IMAGE
     Route: 048
     Dates: start: 20031028, end: 20040216
  9. EFFEXOR XR [Suspect]
     Indication: ANXIETY
     Dosage: SEE IMAGE
     Route: 048
     Dates: start: 20040217, end: 20040301
  10. EFFEXOR XR [Suspect]
     Indication: DEPRESSION
     Dosage: SEE IMAGE
     Route: 048
     Dates: start: 20040217, end: 20040301
  11. EFFEXOR XR [Suspect]
     Indication: ANXIETY
     Dosage: SEE IMAGE
     Route: 048
     Dates: start: 20040302, end: 20040308
  12. EFFEXOR XR [Suspect]
     Indication: DEPRESSION
     Dosage: SEE IMAGE
     Route: 048
     Dates: start: 20040302, end: 20040308
  13. EFFEXOR XR [Suspect]
     Indication: ANXIETY
     Dosage: SEE IMAGE
     Route: 048
     Dates: start: 20040309, end: 20040316
  14. EFFEXOR XR [Suspect]
     Indication: DEPRESSION
     Dosage: SEE IMAGE
     Route: 048
     Dates: start: 20040309, end: 20040316
  15. EFFEXOR XR [Suspect]
     Indication: ANXIETY
     Dosage: SEE IMAGE
     Route: 048
     Dates: start: 20040317, end: 20040329
  16. EFFEXOR XR [Suspect]
     Indication: DEPRESSION
     Dosage: SEE IMAGE
     Route: 048
     Dates: start: 20040317, end: 20040329
  17. EFFEXOR XR [Suspect]
     Indication: ANXIETY
     Dosage: SEE IMAGE
     Route: 048
     Dates: start: 20040330, end: 20040401
  18. EFFEXOR XR [Suspect]
     Indication: DEPRESSION
     Dosage: SEE IMAGE
     Route: 048
     Dates: start: 20040330, end: 20040401
  19. EFFEXOR XR [Suspect]
     Indication: ANXIETY
     Dosage: SEE IMAGE
     Route: 048
     Dates: start: 20040401, end: 20040409
  20. EFFEXOR XR [Suspect]
     Indication: DEPRESSION
     Dosage: SEE IMAGE
     Route: 048
     Dates: start: 20040401, end: 20040409
  21. EFFEXOR XR [Suspect]
     Indication: ANXIETY
     Dosage: SEE IMAGE
     Route: 048
     Dates: start: 20040410, end: 20040413
  22. EFFEXOR XR [Suspect]
     Indication: DEPRESSION
     Dosage: SEE IMAGE
     Route: 048
     Dates: start: 20040410, end: 20040413
  23. EFFEXOR XR [Suspect]
     Indication: ANXIETY
     Dosage: SEE IMAGE
     Route: 048
     Dates: start: 20040418, end: 20040421
  24. EFFEXOR XR [Suspect]
     Indication: DEPRESSION
     Dosage: SEE IMAGE
     Route: 048
     Dates: start: 20040418, end: 20040421
  25. EFFEXOR [Suspect]
     Indication: ANXIETY
     Dosage: 12.5 MG 2X PER 1 DAY, ORAL
     Route: 048
     Dates: start: 20040414, end: 20040417
  26. EFFEXOR [Suspect]
     Indication: DEPRESSION
     Dosage: 12.5 MG 2X PER 1 DAY, ORAL
     Route: 048
     Dates: start: 20040414, end: 20040417
  27. LESCOL [Concomitant]
  28. TOPROL-XL [Concomitant]
  29. KLONOPIN [Concomitant]
  30. ANTABUSE [Concomitant]
  31. ZOCOR [Concomitant]
  32. LIBRIUM [Concomitant]
  33. TYLENOL [Concomitant]
  34. THIAMINE (THIAMINE) [Concomitant]
  35. FOLIC ACID [Concomitant]
  36. SEROQUEL [Concomitant]
  37. CELEXA [Concomitant]
  38. PAMELOR [Concomitant]
  39. DESIPRAMINE HCL [Concomitant]
  40. LEXAPRO [Concomitant]
  41. WELLBUTRIN SR [Concomitant]
  42. TOPAMAX [Concomitant]
  43. TRILEPTAL [Concomitant]
  44. SERZONE [Concomitant]

REACTIONS (39)
  - AFFECT LABILITY [None]
  - AGITATION [None]
  - ALCOHOLISM [None]
  - ANGER [None]
  - ANXIETY [None]
  - APATHY [None]
  - ASTHENIA [None]
  - CONDITION AGGRAVATED [None]
  - CONFUSIONAL STATE [None]
  - CRYING [None]
  - DEPRESSED MOOD [None]
  - DEPRESSION [None]
  - DISTURBANCE IN ATTENTION [None]
  - DIZZINESS [None]
  - DRUG INEFFECTIVE [None]
  - DRUG WITHDRAWAL SYNDROME [None]
  - EATING DISORDER [None]
  - EMOTIONAL DISORDER [None]
  - FAMILY STRESS [None]
  - FATIGUE [None]
  - FEELING ABNORMAL [None]
  - FEELING GUILTY [None]
  - FOOD CRAVING [None]
  - GASTRIC DISORDER [None]
  - HEADACHE [None]
  - IMPAIRED WORK ABILITY [None]
  - IRRITABILITY [None]
  - LIBIDO DECREASED [None]
  - MAJOR DEPRESSION [None]
  - MARITAL PROBLEM [None]
  - MEMORY IMPAIRMENT [None]
  - MOOD SWINGS [None]
  - NAUSEA [None]
  - PANIC ATTACK [None]
  - PARAESTHESIA [None]
  - SELF ESTEEM DECREASED [None]
  - SUICIDAL IDEATION [None]
  - TREATMENT NONCOMPLIANCE [None]
  - WEIGHT INCREASED [None]
